FAERS Safety Report 6554019-5 (Version None)
Quarter: 2010Q1

REPORT INFORMATION
  Report Type: 
  Country: None (occurrence: None)
  Receive Date: 20100127
  Receipt Date: 20100122
  Transmission Date: 20100710
  Serious: Yes (Other)
  Sender: FDA-Public Use
  Company Number: US-ROXANE LABORATORIES, INC.-2010-RO-00085RO

PATIENT
  Age: 21 Year
  Sex: Male
  Weight: 46 kg

DRUGS (10)
  1. HYDROMORPHONE [Suspect]
     Indication: PHANTOM PAIN
     Route: 042
  2. HYDROMORPHONE [Suspect]
     Indication: BREAKTHROUGH PAIN
  3. OXYCODONE [Suspect]
     Indication: PHANTOM PAIN
     Route: 048
  4. GABAPENTIN [Suspect]
     Indication: PHANTOM PAIN
  5. AMITRIPTYLINE HCL [Suspect]
     Indication: PHANTOM PAIN
     Dosage: 50 MG
  6. DIPHENHYDRAMINE [Suspect]
     Indication: PHANTOM PAIN
     Dosage: 50 MG
     Route: 042
  7. PLATELETS [Concomitant]
     Indication: TRANSFUSION
     Dosage: 225 ML
  8. PLATELETS [Concomitant]
     Dosage: 272 ML
  9. RED BLOOD CELLS [Concomitant]
     Indication: TRANSFUSION
     Dosage: 207 ML
  10. GRANISETRON [Concomitant]
     Dosage: 1 MG

REACTIONS (2)
  - DRUG WITHDRAWAL SYNDROME [None]
  - PHANTOM PAIN [None]
